FAERS Safety Report 5150106-7 (Version None)
Quarter: 2006Q4

REPORT INFORMATION
  Report Type: 
  Country: None (occurrence: None)
  Receive Date: 20061114
  Receipt Date: 20061005
  Transmission Date: 20070319
  Serious: Yes (Hospitalization)
  Sender: FDA-Public Use
  Company Number: US-RB-004122-06

PATIENT
  Sex: Female
  Weight: 74.7 kg

DRUGS (20)
  1. SUBOXONE [Suspect]
     Indication: PAIN
     Route: 060
     Dates: start: 20051219, end: 20060208
  2. SUBOXONE [Suspect]
     Indication: DRUG DEPENDENCE
     Route: 060
     Dates: start: 20060209, end: 20060608
  3. SUBOXONE [Suspect]
     Dosage: ^5 PILLS AT 8MG^
     Route: 060
     Dates: start: 20060630, end: 20060630
  4. SUBOXONE [Suspect]
     Route: 060
     Dates: start: 20051025, end: 20051025
  5. SUBOXONE [Suspect]
     Route: 060
     Dates: start: 20051026, end: 20051106
  6. SUBOXONE [Suspect]
     Route: 060
     Dates: start: 20051107, end: 20051107
  7. SUBOXONE [Suspect]
     Route: 060
     Dates: start: 20051108, end: 20051218
  8. ALBUTENOL [Concomitant]
     Indication: ASTHMA
     Dosage: 2 PUFFS TID
     Route: 055
  9. AMINO ACID COCKTAIL [Concomitant]
     Indication: FIBROMYALGIA
     Dosage: DOSAGE UNKNOWN
     Route: 065
     Dates: start: 20051219
  10. OMEGA 3 FISH OIL [Concomitant]
     Indication: FIBROMYALGIA
     Dosage: DOSAGE UNKNOWN
  11. PREDNISONE TAB [Concomitant]
     Indication: ASTHMA
     Dosage: DOSAGE UNKNOWN
     Dates: start: 20060103
  12. TRAZODONE HCL [Concomitant]
     Indication: DEPRESSION
  13. ATIVAN [Concomitant]
     Indication: ANXIETY
     Route: 065
  14. ATIVAN [Concomitant]
     Route: 065
     Dates: end: 20051219
  15. CLONIDINE [Concomitant]
     Indication: ANXIETY
     Route: 065
  16. ZOLOFT [Concomitant]
     Indication: DEPRESSION
     Route: 065
  17. WELLBUTRIN [Concomitant]
     Indication: DEPRESSION
     Route: 065
  18. RITALIN [Concomitant]
     Indication: ATTENTION DEFICIT/HYPERACTIVITY DISORDER
     Route: 065
     Dates: end: 20051025
  19. ADVAIR DISKUS 100/50 [Concomitant]
     Indication: ASTHMA
     Dosage: 2 PUFFS BID
     Route: 055
  20. PREDNISONE TAB [Suspect]
     Dates: start: 20060103

REACTIONS (7)
  - ASTHMA [None]
  - CELLULITIS [None]
  - COLITIS [None]
  - FIBROMYALGIA [None]
  - FLUID RETENTION [None]
  - OVERDOSE [None]
  - PLEURITIC PAIN [None]
